FAERS Safety Report 10330174 (Version 1)
Quarter: 2014Q3

REPORT INFORMATION
  Report Type: Spontaneous
  Country: US (occurrence: US)
  Receive Date: 20140721
  Receipt Date: 20140721
  Transmission Date: 20150326
  Serious: Yes (Other)
  Sender: FDA-Public Use
  Company Number: US-PFIZER INC-2014201798

PATIENT
  Age: 42 Year
  Sex: Female
  Weight: 86.17 kg

DRUGS (5)
  1. LEVOTHYROXINE [Concomitant]
     Active Substance: LEVOTHYROXINE
     Indication: THYROID DISORDER
     Dosage: UNK
  2. LYRICA [Suspect]
     Active Substance: PREGABALIN
     Indication: FIBROMYALGIA
     Dosage: 200 MG (50MG IN THE MORNING, 50MG IN THE AFTERNOON AND 100 MG AT NIGHT), DAILY
     Route: 048
     Dates: end: 201405
  3. FLEXERIL [Concomitant]
     Active Substance: CYCLOBENZAPRINE HYDROCHLORIDE
     Dosage: 30 MG, UNK
  4. RANTAC [Concomitant]
     Indication: DYSPEPSIA
     Dosage: UNK
  5. RANTAC [Concomitant]
     Indication: DYSPEPSIA

REACTIONS (1)
  - Hypoaesthesia [Unknown]

NARRATIVE: CASE EVENT DATE: 2014
